FAERS Safety Report 9324998 (Version 1)
Quarter: 2013Q2

REPORT INFORMATION
  Report Type: Spontaneous
  Country: US (occurrence: US)
  Receive Date: 20130603
  Receipt Date: 20130603
  Transmission Date: 20140414
  Serious: No
  Sender: FDA-Public Use
  Company Number: US-ASTRAZENECA-2013SE35533

PATIENT
  Age: 62 Year
  Sex: Female
  Weight: 81.6 kg

DRUGS (4)
  1. SYMBICORT [Suspect]
     Indication: BRONCHITIS
     Dosage: 160/4.5, 2 PUFFS BID
     Route: 055
     Dates: start: 201205
  2. LOTRIL [Concomitant]
     Indication: HYPERTENSION
     Dosage: 5/10 DAILY
     Route: 048
  3. ALLOPURINOL [Concomitant]
     Indication: BLOOD URIC ACID INCREASED
     Route: 048
  4. COMBIVENT [Concomitant]
     Indication: ASTHMA
     Dosage: 2 PUFFS QID
     Route: 055

REACTIONS (4)
  - Lung infection [Not Recovered/Not Resolved]
  - Chills [Not Recovered/Not Resolved]
  - Dehydration [Not Recovered/Not Resolved]
  - Intentional drug misuse [Unknown]
